FAERS Safety Report 12525978 (Version 2)
Quarter: 2016Q3

REPORT INFORMATION
  Report Type: Report from Study
  Country: FR (occurrence: FR)
  Receive Date: 20160705
  Receipt Date: 20160708
  Transmission Date: 20161109
  Serious: Yes (Death, Hospitalization, Other)
  Sender: FDA-Public Use
  Company Number: FR-BRISTOL-MYERS SQUIBB COMPANY-BMS-2015-036092

PATIENT
  Age: 64 Year
  Sex: Female
  Weight: 67 kg

DRUGS (12)
  1. AZATHIOPRINE. [Concomitant]
     Active Substance: AZATHIOPRINE
     Indication: TRANSPLANT REJECTION
     Dosage: 50 MG, QD
     Route: 065
     Dates: start: 2014
  2. DACLATASVIR DIHYDROCHLORIDE [Suspect]
     Active Substance: DACLATASVIR DIHYDROCHLORIDE
     Indication: HEPATITIS C
     Dosage: 60 MG, QD
     Route: 048
     Dates: start: 20141013
  3. LASILIX                            /00032601/ [Concomitant]
     Active Substance: FUROSEMIDE
     Indication: POLYURIA
     Dosage: 125 MG, QD
     Route: 065
     Dates: start: 2013, end: 20150310
  4. NEORAL [Concomitant]
     Active Substance: CYCLOSPORINE
     Indication: TRANSPLANT REJECTION
     Dosage: 50 MG, BID
     Route: 065
     Dates: start: 1998
  5. CORTANCYL [Concomitant]
     Active Substance: PREDNISONE
     Indication: ANTIINFLAMMATORY THERAPY
     Dosage: 10 MG, QD
     Route: 065
     Dates: end: 20150310
  6. LEVOTHYROX [Concomitant]
     Active Substance: LEVOTHYROXINE
     Indication: HYPOTHYROIDISM
     Dosage: 175 ?G, QD
     Route: 065
     Dates: start: 199106, end: 20150310
  7. ALBUMIN [Concomitant]
     Active Substance: ALBUMIN HUMAN
     Indication: ASCITES
     Dosage: UNK
     Route: 065
     Dates: start: 201306, end: 20150310
  8. EUPRESSYL                          /00631801/ [Concomitant]
     Active Substance: URAPIDIL
     Indication: HYPERTENSION
     Dosage: 1 DF, QD
     Route: 065
     Dates: start: 2008
  9. NEBIVOLOL. [Concomitant]
     Active Substance: NEBIVOLOL
     Indication: HYPERTENSION
     Dosage: 5 MG, QD
     Route: 065
     Dates: start: 201408
  10. PRAZOSINE [Concomitant]
     Indication: HYPERTENSION
     Dosage: 5 MG, TID
     Route: 065
     Dates: start: 2014
  11. SOFOSBUVIR [Suspect]
     Active Substance: SOFOSBUVIR
     Indication: HEPATITIS C
     Dosage: 400 MG, UNK
     Route: 048
     Dates: start: 20141013
  12. AMLODIPINE [Concomitant]
     Active Substance: AMLODIPINE BESYLATE
     Indication: HYPERTENSION
     Dosage: 10 MG, QD
     Route: 065
     Dates: start: 2008

REACTIONS (15)
  - Hepatic failure [Fatal]
  - Dialysis [Unknown]
  - Hypokalaemia [Unknown]
  - Hepatorenal syndrome [Unknown]
  - Cardiac failure [Fatal]
  - Hyperkalaemia [Recovered/Resolved]
  - Device related thrombosis [Unknown]
  - Pseudomonas infection [Unknown]
  - Chronic kidney disease [Fatal]
  - Lung disorder [Recovered/Resolved]
  - Cardiorenal syndrome [Unknown]
  - Abdominal cavity drainage [Unknown]
  - Intestinal obstruction [Unknown]
  - Ascites [Unknown]
  - Acute kidney injury [Fatal]

NARRATIVE: CASE EVENT DATE: 20141112
